FAERS Safety Report 26042250 (Version 2)
Quarter: 2025Q4

REPORT INFORMATION
  Report Type: Spontaneous
  Country: JP (occurrence: JP)
  Receive Date: 20251113
  Receipt Date: 20251120
  Transmission Date: 20260117
  Serious: Yes (Other)
  Sender: ROCHE
  Company Number: JP-CHUGAI-2025035728

PATIENT
  Age: 69 Year
  Sex: Female

DRUGS (4)
  1. BEVACIZUMAB [Suspect]
     Active Substance: BEVACIZUMAB
     Indication: Rectosigmoid cancer
     Dosage: UNK
     Route: 042
  2. OXALIPLATIN [Concomitant]
     Active Substance: OXALIPLATIN
     Indication: Rectosigmoid cancer
     Dosage: UNK
     Route: 042
  3. LEVOLEUCOVORIN CALCIUM [Concomitant]
     Active Substance: LEVOLEUCOVORIN CALCIUM
     Indication: Rectosigmoid cancer
     Dosage: UNK
     Route: 042
  4. FLUOROURACIL [Concomitant]
     Active Substance: FLUOROURACIL
     Indication: Rectosigmoid cancer
     Dosage: UNK
     Route: 042

REACTIONS (1)
  - Presyncope [Unknown]
